FAERS Safety Report 23849858 (Version 3)
Quarter: 2024Q3

REPORT INFORMATION
  Report Type: Other
  Country: US (occurrence: US)
  Receive Date: 20240513
  Receipt Date: 20240711
  Transmission Date: 20241017
  Serious: Yes (Hospitalization)
  Sender: TRAVERE THERAPEUTICS
  Company Number: US-TRAVERE-2024TVT00268

PATIENT
  Age: 49 Year
  Sex: Female
  Weight: 181.4 kg

DRUGS (7)
  1. FILSPARI [Suspect]
     Active Substance: SPARSENTAN
     Indication: IgA nephropathy
     Route: 048
     Dates: start: 20240221
  2. FILSPARI [Suspect]
     Active Substance: SPARSENTAN
     Dosage: ON 05-MAR-2024, DOSE WAS INCREASED TO 400 MG AND PATIENT BEGIN DIZZY THEN HCP INSTRUCTED TO STAY ON
     Route: 048
     Dates: start: 20240305
  3. FILSPARI [Suspect]
     Active Substance: SPARSENTAN
     Dosage: DUE TO THE DIZZY, HCP INSTRUCTED TO STAY ON 200 MG.
     Route: 048
     Dates: end: 202406
  4. ATORVASTATIN [Concomitant]
     Active Substance: ATORVASTATIN
  5. TIRZEPATIDE [Concomitant]
     Active Substance: TIRZEPATIDE
  6. AMLODIPINE [Concomitant]
     Active Substance: AMLODIPINE BESYLATE
  7. METOPROLOL [Concomitant]
     Active Substance: METOPROLOL

REACTIONS (4)
  - Acute kidney injury [Recovered/Resolved]
  - Dizziness [Unknown]
  - Pain in extremity [Unknown]
  - Arthralgia [Unknown]

NARRATIVE: CASE EVENT DATE: 20240305
